FAERS Safety Report 12142637 (Version 1)
Quarter: 2016Q1

REPORT INFORMATION
  Report Type: Spontaneous
  Country: US (occurrence: US)
  Receive Date: 20160303
  Receipt Date: 20160303
  Transmission Date: 20160526
  Serious: Yes (Other)
  Sender: FDA-Public Use
  Company Number: US-TEVA-623214USA

PATIENT
  Sex: Female
  Weight: 52.21 kg

DRUGS (2)
  1. HYDROXYCARBAMIDE [Suspect]
     Active Substance: HYDROXYUREA
     Indication: ESSENTIAL THROMBOCYTHAEMIA
  2. HYDROXYCARBAMIDE [Suspect]
     Active Substance: HYDROXYUREA
     Indication: PLATELET COUNT INCREASED
     Route: 065
     Dates: start: 1999, end: 20050307

REACTIONS (4)
  - Malaise [Unknown]
  - Platelet count increased [Unknown]
  - Weight decreased [Unknown]
  - Product use issue [Recovered/Resolved]
